FAERS Safety Report 10580473 (Version 1)
Quarter: 2014Q4

REPORT INFORMATION
  Report Type: Spontaneous
  Country: GB (occurrence: GB)
  Receive Date: 20141113
  Receipt Date: 20141113
  Transmission Date: 20150529
  Serious: Yes (Hospitalization)
  Sender: FDA-Public Use
  Company Number: GB-AMGEN-GBRSP2014087279

PATIENT
  Age: 63 Year
  Sex: Female

DRUGS (2)
  1. CALCIUM AND ERGOCALCIFEROL [Concomitant]
  2. PROLIA [Suspect]
     Active Substance: DENOSUMAB
     Indication: OSTEOPOROSIS
     Dosage: 60 MG, UNK
     Route: 058
     Dates: start: 20130902, end: 20141016

REACTIONS (5)
  - Stress urinary incontinence [Recovering/Resolving]
  - Vomiting [Recovering/Resolving]
  - Lower respiratory tract infection [Recovering/Resolving]
  - Haematuria [Recovering/Resolving]
  - Urinary tract infection [Recovering/Resolving]

NARRATIVE: CASE EVENT DATE: 20140312
